FAERS Safety Report 5391742-2 (Version None)
Quarter: 2007Q3

REPORT INFORMATION
  Report Type: 
  Country: None (occurrence: None)
  Receive Date: 20070717
  Receipt Date: 20070706
  Transmission Date: 20080115
  Serious: Yes (Other)
  Sender: FDA-Public Use
  Company Number: 2007AL002746

PATIENT
  Sex: Female

DRUGS (5)
  1. SERTRALINE HYDROCHLORIDE [Suspect]
     Indication: OBSESSIVE-COMPULSIVE DISORDER
     Dosage: 125 MG; QD; PO
     Route: 048
     Dates: start: 20060101
  2. LOPERAMIDE HCL [Concomitant]
  3. OMEPRAZOLE [Concomitant]
  4. DIAZEPAM [Concomitant]
  5. DIHYDROCODEINE BITARTRATE INJ [Concomitant]

REACTIONS (9)
  - ALANINE AMINOTRANSFERASE INCREASED [None]
  - BLOOD ALKALINE PHOSPHATASE INCREASED [None]
  - BLOOD CREATININE ABNORMAL [None]
  - CHOLELITHIASIS [None]
  - HAEMOGLOBIN DECREASED [None]
  - HEPATIC STEATOSIS [None]
  - HERPES ZOSTER [None]
  - LYMPHOCYTE COUNT DECREASED [None]
  - MUSCULOSKELETAL PAIN [None]
